FAERS Safety Report 8520067-9 (Version None)
Quarter: 2012Q3

REPORT INFORMATION
  Report Type: 
  Country: None (occurrence: None)
  Receive Date: 20120719
  Receipt Date: 20120716
  Transmission Date: 20120928
  Serious: No
  Sender: FDA-Public Use
  Company Number: US-PFIZER INC-2012155118

PATIENT
  Sex: Female
  Weight: 82.54 kg

DRUGS (1)
  1. LYRICA [Suspect]
     Indication: NEURALGIA
     Dosage: 50 MG, 3X/DAY
     Route: 048
     Dates: start: 20120626

REACTIONS (6)
  - ABDOMINAL DISCOMFORT [None]
  - SOMNOLENCE [None]
  - VISION BLURRED [None]
  - PAIN IN EXTREMITY [None]
  - DIZZINESS [None]
  - DRUG INEFFECTIVE [None]
